FAERS Safety Report 11662324 (Version 1)
Quarter: 2015Q4

REPORT INFORMATION
  Report Type: Spontaneous
  Country: LK (occurrence: LK)
  Receive Date: 20151027
  Receipt Date: 20151027
  Transmission Date: 20160304
  Serious: Yes (Other)
  Sender: FDA-Public Use
  Company Number: LK-PAR PHARMACEUTICAL COMPANIES-2015SCPR014422

PATIENT

DRUGS (1)
  1. DIAZEPAM. [Suspect]
     Active Substance: DIAZEPAM
     Dosage: UNK UNK, UNKNOWN
     Route: 048

REACTIONS (3)
  - Disability [Unknown]
  - Poisoning [Unknown]
  - Accidental exposure to product [Unknown]
